FAERS Safety Report 4815387-5 (Version None)
Quarter: 2005Q4

REPORT INFORMATION
  Report Type: 
  Country: None (occurrence: None)
  Receive Date: 20051027
  Receipt Date: 20051021
  Transmission Date: 20060501
  Serious: Yes (Other)
  Sender: FDA-Public Use
  Company Number: 12194

PATIENT
  Age: 56 Year
  Sex: Male

DRUGS (9)
  1. AREDIA [Suspect]
  2. ZOLEDRONIC ACID [Suspect]
     Indication: METASTASES TO BONE
  3. DOXORUBICIN HCL [Concomitant]
  4. VINCRISTINE [Concomitant]
  5. DEXAMETHASONE [Concomitant]
  6. ANABOLIC STEROIDS [Concomitant]
  7. THALIDOMIDE [Concomitant]
  8. CYCLOPHOSPHAMIDE [Concomitant]
  9. CC-5013 [Suspect]

REACTIONS (2)
  - INFECTION [None]
  - OSTEONECROSIS [None]
